FAERS Safety Report 9879150 (Version 2)
Quarter: 2014Q1

REPORT INFORMATION
  Report Type: Spontaneous
  Country: US (occurrence: US)
  Receive Date: 20140206
  Receipt Date: 20140303
  Transmission Date: 20141002
  Serious: Yes (Other)
  Sender: FDA-Public Use
  Company Number: PHHY2014US014275

PATIENT
  Age: 62 Year
  Sex: Male

DRUGS (9)
  1. BACLOFEN INTRATHECAL [Suspect]
     Indication: CEREBRAL PALSY
     Dosage: UNK UKN, UNK
     Route: 037
  2. BACLOFEN INTRATHECAL [Suspect]
     Dosage: UP TO 8%
     Route: 037
  3. BACLOFEN INTRATHECAL [Suspect]
     Dosage: WAS DECREASED
     Dates: start: 201402
  4. MIRTAZAPINE TABLETS [Suspect]
     Dosage: UNK UKN, UNK
  5. MORPHINE [Suspect]
     Dosage: UNK UKN, UNK
     Route: 037
  6. BUPIVACAINE [Suspect]
     Dosage: UNK UKN, UNK
     Route: 037
  7. NORCO [Suspect]
     Dosage: UNK UKN, UNK
  8. CYMBALTA [Suspect]
     Dosage: UNK UKN, UNK
  9. SEROQUEL [Suspect]
     Indication: PSYCHOTIC DISORDER
     Dosage: UNK UKN, UNK

REACTIONS (17)
  - Euphoric mood [Unknown]
  - Memory impairment [Unknown]
  - Hypothermia [Unknown]
  - Delirium [Unknown]
  - Red blood cell count decreased [Unknown]
  - Emotional distress [Unknown]
  - Tracheal haemorrhage [Unknown]
  - Adverse event [Unknown]
  - Blood pressure increased [Unknown]
  - Suicidal behaviour [Unknown]
  - Crying [Unknown]
  - Confusional state [Unknown]
  - Somnolence [Unknown]
  - Anxiety [Unknown]
  - Depression [Unknown]
  - Respiratory depression [Unknown]
  - Paranoia [Unknown]
